FAERS Safety Report 16887751 (Version 1)
Quarter: 2019Q4

REPORT INFORMATION
  Report Type: Spontaneous
  Country: CA (occurrence: CA)
  Receive Date: 20191005
  Receipt Date: 20191005
  Transmission Date: 20200122
  Serious: Yes (Hospitalization)
  Sender: FDA-Public Use
  Company Number: CA-AUROBINDO-AUR-APL-2019-065031

PATIENT
  Age: 25 Year
  Sex: Male
  Weight: 64.8 kg

DRUGS (1)
  1. AMOXICILLIN. [Suspect]
     Active Substance: AMOXICILLIN
     Indication: EAR INFECTION
     Dosage: 500 MILLIGRAM
     Route: 048

REACTIONS (2)
  - Vertigo [Recovered/Resolved]
  - Dyspnoea [Recovered/Resolved]
